FAERS Safety Report 16038171 (Version 4)
Quarter: 2019Q3

REPORT INFORMATION
  Report Type: Spontaneous
  Country: US (occurrence: US)
  Receive Date: 20190305
  Receipt Date: 20190903
  Transmission Date: 20191004
  Serious: Yes (Other)
  Sender: FDA-Public Use
  Company Number: US-ASTRAZENECA-2018SF33508

PATIENT
  Age: 689 Month
  Sex: Female
  Weight: 58.5 kg

DRUGS (21)
  1. PERCOCET [Concomitant]
     Active Substance: ACETAMINOPHEN\OXYCODONE HYDROCHLORIDE
  2. PROTONIX [Concomitant]
     Active Substance: PANTOPRAZOLE SODIUM
  3. TUMS [Concomitant]
     Active Substance: CALCIUM CARBONATE
  4. SEVELAMER [Concomitant]
     Active Substance: SEVELAMER
  5. CHLORHEXIDINE [Concomitant]
     Active Substance: CHLORHEXIDINE
  6. LEVEMIR [Concomitant]
     Active Substance: INSULIN DETEMIR
  7. SENSIPAR [Concomitant]
     Active Substance: CINACALCET HYDROCHLORIDE
  8. PREVACID [Suspect]
     Active Substance: LANSOPRAZOLE
     Indication: GASTROOESOPHAGEAL REFLUX DISEASE
     Route: 065
     Dates: start: 20120101, end: 20151201
  9. CLARITIN [Concomitant]
     Active Substance: LORATADINE
  10. ALBUTEROL. [Concomitant]
     Active Substance: ALBUTEROL
  11. CARVEDILOL. [Concomitant]
     Active Substance: CARVEDILOL
  12. NEXIUM [Suspect]
     Active Substance: ESOMEPRAZOLE MAGNESIUM
     Indication: GASTROOESOPHAGEAL REFLUX DISEASE
     Route: 048
     Dates: start: 20120101, end: 20151201
  13. SEROQUEL [Concomitant]
     Active Substance: QUETIAPINE FUMARATE
  14. VITAMIN D3 [Concomitant]
     Active Substance: CHOLECALCIFEROL
  15. NIFEDIPINE. [Concomitant]
     Active Substance: NIFEDIPINE
  16. SIMVASTATIN. [Concomitant]
     Active Substance: SIMVASTATIN
  17. VALSARTAN. [Concomitant]
     Active Substance: VALSARTAN
  18. IMIPENEM [Concomitant]
     Active Substance: IMIPENEM
  19. FLOVENT [Concomitant]
     Active Substance: FLUTICASONE PROPIONATE
  20. TOBRAMYCIN. [Concomitant]
     Active Substance: TOBRAMYCIN
  21. AMLODIPINE [Concomitant]
     Active Substance: AMLODIPINE BESYLATE

REACTIONS (7)
  - Renal injury [Unknown]
  - Acute kidney injury [Unknown]
  - Hyperparathyroidism secondary [Unknown]
  - Renal failure [Unknown]
  - Chronic kidney disease [Not Recovered/Not Resolved]
  - End stage renal disease [Not Recovered/Not Resolved]
  - Nephrogenic anaemia [Unknown]

NARRATIVE: CASE EVENT DATE: 201503
